FAERS Safety Report 7719714-0 (Version None)
Quarter: 2011Q3

REPORT INFORMATION
  Report Type: 
  Country: None (occurrence: None)
  Receive Date: 20110830
  Receipt Date: 20110720
  Transmission Date: 20111222
  Serious: Yes (Other)
  Sender: FDA-Public Use
  Company Number: PHHY2011JP58745

PATIENT
  Sex: Female

DRUGS (2)
  1. METHERGINE [Suspect]
     Indication: POST ABORTION COMPLICATION
     Dosage: TWICE IN THE MORNING AND AT 21:30 HOURS
     Route: 048
     Dates: start: 20110621, end: 20110621
  2. LEVOFLOXACIN [Concomitant]
     Dosage: 500 MG, UNK
     Route: 049
     Dates: start: 20110620

REACTIONS (3)
  - DYSPNOEA [None]
  - HYPERVENTILATION [None]
  - DIZZINESS [None]
